FAERS Safety Report 24790350 (Version 1)
Quarter: 2024Q4

REPORT INFORMATION
  Report Type: Spontaneous
  Country: US (occurrence: None)
  Receive Date: 20241230
  Receipt Date: 20241230
  Transmission Date: 20250115
  Serious: Yes (Hospitalization)
  Sender: Public
  Company Number: None

PATIENT
  Sex: Female

DRUGS (6)
  1. LENALIDOMIDE [Suspect]
     Active Substance: LENALIDOMIDE
     Indication: Plasma cell myeloma
     Dosage: OTHER FREQUENCY : DAILYFOR14DAYSTHENBY7DAYSOFF;?
     Route: 048
     Dates: start: 20240719
  2. ASPIRIN LOW TAB 81 MG EC [Concomitant]
  3. DEXAMETHASONE [Concomitant]
     Active Substance: DEXAMETHASONE
  4. FERROUS SULF TAB 325MG [Concomitant]
  5. KP VITAMIN D [Concomitant]
  6. VELCADE [Concomitant]
     Active Substance: BORTEZOMIB

REACTIONS (1)
  - Therapy interrupted [None]
